FAERS Safety Report 6648311-3 (Version None)
Quarter: 2010Q1

REPORT INFORMATION
  Report Type: 
  Country: None (occurrence: None)
  Receive Date: 20100324
  Receipt Date: 20100317
  Transmission Date: 20100710
  Serious: Yes (Other)
  Sender: FDA-Public Use
  Company Number: FR-ROCHE-689359

PATIENT
  Sex: Female
  Weight: 60 kg

DRUGS (1)
  1. CELLCEPT [Suspect]
     Indication: PROGRESSIVE MULTIPLE SCLEROSIS
     Route: 048
     Dates: start: 20091005

REACTIONS (1)
  - HYPOTHERMIA [None]
